FAERS Safety Report 25203880 (Version 1)
Quarter: 2025Q2

REPORT INFORMATION
  Report Type: Spontaneous
  Country: US (occurrence: None)
  Receive Date: 20250416
  Receipt Date: 20250416
  Transmission Date: 20250716
  Serious: Yes (Life-Threatening, Other)
  Sender: FDA-CTU
  Company Number: None

PATIENT
  Age: 65 Year
  Sex: Female
  Weight: 98.8 kg

DRUGS (1)
  1. CEFTRIAXONE [Suspect]
     Active Substance: CEFTRIAXONE
     Indication: Urinary tract infection
     Route: 042

REACTIONS (11)
  - Restlessness [None]
  - Anxiety [None]
  - Pain [None]
  - Dyspnoea [None]
  - Cyanosis [None]
  - Erythema [None]
  - Urticaria [None]
  - Unresponsive to stimuli [None]
  - Vomiting [None]
  - Swollen tongue [None]
  - Anaphylactic shock [None]

NARRATIVE: CASE EVENT DATE: 20250415
